FAERS Safety Report 13515663 (Version 1)
Quarter: 2017Q2

REPORT INFORMATION
  Report Type: Spontaneous
  Country: US (occurrence: US)
  Receive Date: 20170504
  Receipt Date: 20170504
  Transmission Date: 20170830
  Serious: Yes (Other)
  Sender: FDA-Public Use
  Company Number: US-ABBVIE-17P-163-1964214-00

PATIENT
  Age: 74 Year
  Sex: Male

DRUGS (3)
  1. ANDRODERM [Suspect]
     Active Substance: TESTOSTERONE
     Indication: HYPOGONADISM
     Route: 061
  2. ANDROGEL [Suspect]
     Active Substance: TESTOSTERONE
     Indication: HYPOGONADISM
     Route: 061
  3. ANDROGEL [Suspect]
     Active Substance: TESTOSTERONE
     Indication: HYPOGONADISM
     Dosage: 2 PUMPS DAILY
     Route: 061

REACTIONS (3)
  - Arthropathy [Not Recovered/Not Resolved]
  - Tendon disorder [Not Recovered/Not Resolved]
  - Arthritis [Not Recovered/Not Resolved]
